FAERS Safety Report 18373305 (Version 3)
Quarter: 2020Q4

REPORT INFORMATION
  Report Type: Spontaneous
  Country: CA (occurrence: CA)
  Receive Date: 20201012
  Receipt Date: 20201105
  Transmission Date: 20210114
  Serious: Yes (Death)
  Sender: FDA-Public Use
  Company Number: CA-PFIZER INC-2019280123

PATIENT
  Age: 57 Year
  Sex: Female
  Weight: 61.7 kg

DRUGS (17)
  1. STATEX [SIMVASTATIN] [Concomitant]
     Dosage: 5 MG, AS NEEDED
  2. ZOMETA [Concomitant]
     Active Substance: ZOLEDRONIC ACID
     Dosage: UNK
  3. IBRANCE [Suspect]
     Active Substance: PALBOCICLIB
     Dosage: 125 MG, CYCLIC ,(DAILY FOR 21 DAYS IN A ROW. STOP FOR 7 DAYS)
     Route: 048
     Dates: start: 20200408
  4. PARIET [Concomitant]
     Active Substance: RABEPRAZOLE SODIUM
     Dosage: 20 MG, DAILY
  5. BIOTIN [Concomitant]
     Active Substance: BIOTIN
     Dosage: UNK
  6. HYDROTHIAZIDE [Concomitant]
     Dosage: 25 MG, DAILY
  7. ANASTROZOLE. [Concomitant]
     Active Substance: ANASTROZOLE
     Dosage: 1 MG, DAILY
  8. FULVESTRANT. [Concomitant]
     Active Substance: FULVESTRANT
     Dosage: 500 MG, DAY 0, 14, 28 THEN EVERY 28 DAYS THEREAFTER
     Route: 030
  9. IBRANCE [Suspect]
     Active Substance: PALBOCICLIB
     Dosage: 125 MG, CYCLIC ,(DAILY FOR 21 DAYS IN A ROW. STOP FOR 7 DAYS)
     Route: 048
     Dates: start: 20190531, end: 20191128
  10. IBRANCE [Suspect]
     Active Substance: PALBOCICLIB
     Dosage: 125 MG, CYCLIC ,(DAILY FOR 21 DAYS IN A ROW. STOP FOR 7 DAYS)
     Route: 048
     Dates: start: 20200101
  11. ZOLADEX [Concomitant]
     Active Substance: GOSERELIN ACETATE
     Dosage: UNK
  12. METHADONE [Concomitant]
     Active Substance: METHADONE HYDROCHLORIDE
     Dosage: 95 MG, DAILY
  13. BISOPROLOL [Concomitant]
     Active Substance: BISOPROLOL
     Dosage: 5 MG, 1X/DAY
  14. METOCLOPRAMIDE. [Concomitant]
     Active Substance: METOCLOPRAMIDE
     Dosage: 2 DF, UNK (1 HOURS BEFORE MEAL)
  15. MORPHINE [Concomitant]
     Active Substance: MORPHINE
     Dosage: 3 MG, 2X/DAY
  16. TURMERIC CURCUMIN [CURCUMA LONGA RHIZOME] [Concomitant]
     Active Substance: HERBALS\TURMERIC
     Dosage: 450 MG, DAILY
  17. LETROZOLE. [Concomitant]
     Active Substance: LETROZOLE
     Dosage: UNK

REACTIONS (3)
  - Death [Fatal]
  - Tachycardia [Unknown]
  - Blood count abnormal [Not Recovered/Not Resolved]

NARRATIVE: CASE EVENT DATE: 2019
